FAERS Safety Report 5911944-3 (Version None)
Quarter: 2008Q4

REPORT INFORMATION
  Report Type: 
  Country: None (occurrence: None)
  Receive Date: 20081008
  Receipt Date: 20080929
  Transmission Date: 20090506
  Serious: Yes (Hospitalization, Other)
  Sender: FDA-Public Use
  Company Number: PHHY2008BE22916

PATIENT
  Age: 62 Year
  Sex: Female

DRUGS (5)
  1. LEPONEX [Suspect]
     Indication: SCHIZOPHRENIA
     Dosage: 25 MG/ EVERY OTHER DAY
     Route: 048
     Dates: start: 20040101, end: 20040101
  2. LEPONEX [Suspect]
     Dosage: 700 MG/DAY
     Route: 048
     Dates: start: 20040101, end: 20040101
  3. AMLODIPINE [Concomitant]
     Dosage: 5 MG/DAY
     Route: 065
  4. BROMAZEPAM [Concomitant]
     Dosage: 12 MG/DAY
     Route: 065
  5. HEXETIMIDE [Concomitant]
     Dosage: 5 MG/DAY
     Route: 065

REACTIONS (10)
  - AGGRESSION [None]
  - AGITATION [None]
  - DRUG LEVEL INCREASED [None]
  - EPILEPSY [None]
  - EX-TOBACCO USER [None]
  - FALL [None]
  - HAEMATOMA [None]
  - JOINT DISLOCATION [None]
  - POISONING [None]
  - SURGERY [None]
